FAERS Safety Report 9648949 (Version 2)
Quarter: 2013Q4

REPORT INFORMATION
  Report Type: Report from Study
  Country: BE (occurrence: BE)
  Receive Date: 20131028
  Receipt Date: 20131028
  Transmission Date: 20140711
  Serious: Yes (Death, Life-Threatening, Hospitalization)
  Sender: FDA-Public Use
  Company Number: BE-ABBVIE-11P-013-0836249-02

PATIENT
  Age: 49 Year
  Sex: Female

DRUGS (70)
  1. HUMIRA [Suspect]
     Indication: CROHN^S DISEASE
     Route: 058
     Dates: start: 20090925, end: 20090925
  2. HUMIRA [Suspect]
     Dosage: WEEK 2
     Route: 058
  3. HUMIRA [Suspect]
     Route: 058
     Dates: end: 20100315
  4. IMODIUM [Concomitant]
     Indication: DIARRHOEA
     Dates: start: 20010223
  5. NUROFEN [Concomitant]
     Indication: HEADACHE
     Dates: start: 200912
  6. CO-BISOPROLOL [Concomitant]
     Indication: HYPERTENSION
     Dosage: 5/12.5 MG
     Dates: start: 201003
  7. MEDROL [Concomitant]
     Indication: CROHN^S DISEASE
     Dates: start: 20100329, end: 201004
  8. IMURAN [Concomitant]
     Indication: CROHN^S DISEASE
     Dates: start: 20100329, end: 20101221
  9. IMURAN [Concomitant]
     Dates: start: 20110105, end: 20110204
  10. IMURAN [Concomitant]
     Dates: start: 20110226, end: 20110409
  11. ALPRAZOLAM [Concomitant]
     Indication: ANXIETY
     Dates: start: 201005
  12. AVELOX [Concomitant]
     Indication: BRONCHITIS
     Dates: start: 201011
  13. ENTOCORT [Concomitant]
     Indication: CROHN^S DISEASE
     Dates: start: 20101130, end: 20101221
  14. PERFUSALGAN [Concomitant]
     Indication: PAIN
     Dates: start: 20101222, end: 20110102
  15. PERFUSALGAN [Concomitant]
     Dates: start: 20110205, end: 20110228
  16. PERFUSALGAN [Concomitant]
     Dates: start: 20110404, end: 20110422
  17. FRAXIPARINE [Concomitant]
     Indication: PROPHYLAXIS
     Dates: start: 20101223, end: 20110104
  18. FRAXIPARINE [Concomitant]
     Dates: start: 20110407, end: 20110513
  19. TAZOCIN [Concomitant]
     Indication: LARGE INTESTINE PERFORATION
     Dates: start: 20101221, end: 20110103
  20. TAZOCIN [Concomitant]
     Indication: ABDOMINAL ABSCESS
     Dates: start: 20110205, end: 20110316
  21. TAZOCIN [Concomitant]
     Indication: ABSCESS
     Dates: start: 20110404, end: 20110505
  22. SOLU-MEDROL [Concomitant]
     Indication: ABSCESS INTESTINAL
     Dates: start: 20101229, end: 20110103
  23. SOLU-MEDROL [Concomitant]
     Indication: LARGE INTESTINE PERFORATION
     Dates: start: 20110208, end: 20110212
  24. SOLU-MEDROL [Concomitant]
     Dates: start: 20110213, end: 20110316
  25. GEOMYCINE [Concomitant]
     Indication: ABSCESS
     Dates: start: 20101222, end: 20101224
  26. GEOMYCINE [Concomitant]
     Indication: LARGE INTESTINAL OBSTRUCTION
     Dates: start: 20110205, end: 20110214
  27. TRAMADOL [Concomitant]
     Indication: PAIN
     Dates: start: 20101226, end: 20101230
  28. TRAMADOL [Concomitant]
     Dates: start: 20110207, end: 20110211
  29. LITICAN [Concomitant]
     Indication: NAUSEA
     Dates: start: 20101223, end: 20101230
  30. LITICAN [Concomitant]
     Dosage: 50 MG/2 ML
     Dates: start: 20110207, end: 20110211
  31. CONTRAMAL [Concomitant]
     Indication: PAIN
     Dosage: 100 MG/2 ML
     Dates: start: 20101220, end: 20101222
  32. CONTRAMAL [Concomitant]
     Dosage: 100 MG/2 ML
     Dates: start: 20101223, end: 20101225
  33. GAVISCON [Concomitant]
     Indication: DYSPEPSIA
     Dates: start: 20101230, end: 20101230
  34. TRADONAL [Concomitant]
     Indication: PAIN
     Dates: start: 20101224, end: 20101231
  35. TRADONAL [Concomitant]
     Dates: start: 201101
  36. SOLUTIONS FOR PARENTERAL NUTRITION [Concomitant]
     Indication: MALNUTRITION
     Dates: start: 20101224, end: 20110102
  37. SOLUTIONS FOR PARENTERAL NUTRITION [Concomitant]
     Indication: CACHEXIA
     Dates: start: 20110208, end: 20110316
  38. SOLUTIONS FOR PARENTERAL NUTRITION [Concomitant]
     Dates: start: 20110404
  39. LYSOMUCIL [Concomitant]
     Indication: PRODUCTIVE COUGH
     Dosage: 600MG/6ML
     Dates: start: 20101230, end: 20110101
  40. LYSOMUCIL [Concomitant]
     Dosage: 600MG/6ML
     Dates: start: 20110315, end: 20110315
  41. MOVICOL [Concomitant]
     Indication: CONSTIPATION
     Dates: start: 20101218, end: 20101220
  42. KETEK [Concomitant]
     Indication: BRONCHITIS
     Dates: start: 20101220, end: 20101220
  43. REMICADE [Concomitant]
     Indication: CROHN^S DISEASE
     Dates: start: 20101215, end: 20101215
  44. VENOFER [Concomitant]
     Indication: IRON DEFICIENCY
     Dates: start: 20101215, end: 20101215
  45. PANTOMED [Concomitant]
     Indication: GASTRIC DISORDER
     Dates: start: 20110208
  46. PANTOMED [Concomitant]
     Indication: PROPHYLAXIS
  47. GYNO-DAKTARIN [Concomitant]
     Indication: VULVOVAGINAL MYCOTIC INFECTION
     Dates: start: 20110227, end: 20110301
  48. SPORANOX [Concomitant]
     Indication: VULVOVAGINAL MYCOTIC INFECTION
     Dates: start: 20110301, end: 20110308
  49. AUGMENTIN [Concomitant]
     Indication: INTESTINAL OBSTRUCTION
     Dates: start: 201101, end: 20110204
  50. DAFALGAN [Concomitant]
     Indication: PAIN
     Dates: start: 201101
  51. BUSCOPAN [Concomitant]
     Indication: ABDOMINAL PAIN
     Dosage: 20 MG/1 ML
     Dates: start: 20110228, end: 20110228
  52. LYSOX [Concomitant]
     Indication: PRODUCTIVE COUGH
     Dates: start: 20110316, end: 20110317
  53. TAVANIC [Concomitant]
     Indication: ABDOMINAL ABSCESS
     Dates: start: 20110317, end: 20110403
  54. TAVANIC [Concomitant]
     Indication: LARGE INTESTINE PERFORATION
  55. TIBERAL [Concomitant]
     Indication: LARGE INTESTINAL OBSTRUCTION
     Dates: start: 20110317, end: 20110403
  56. TEMESTA [Concomitant]
     Indication: INSOMNIA
     Dates: start: 20110214, end: 20110415
  57. FORLAX [Concomitant]
     Indication: CONSTIPATION
     Dates: start: 20110216, end: 20110227
  58. GLYCERIN [Concomitant]
     Indication: CONSTIPATION
     Dates: start: 20110226, end: 20110305
  59. LASIX [Concomitant]
     Indication: OEDEMA PERIPHERAL
     Dates: start: 20110408, end: 20110410
  60. VOLTAREN [Concomitant]
     Indication: PAIN
     Dates: start: 20110411, end: 20110421
  61. ENDRINE [Concomitant]
     Indication: PRODUCT USED FOR UNKNOWN INDICATION
     Dosage: 3 TIMES
     Dates: start: 20110408, end: 20110422
  62. SANDOSTATINE [Concomitant]
     Indication: GASTROINTESTINAL ANASTOMOTIC LEAK
     Dates: start: 20110429, end: 20110430
  63. FLUCONAZOLE [Concomitant]
     Indication: VULVOVAGINAL MYCOTIC INFECTION
     Dates: start: 20110415, end: 20110509
  64. SOLUMEDROL [Concomitant]
     Indication: CROHN^S DISEASE
     Dates: start: 20110404, end: 20110410
  65. MEDROL [Concomitant]
     Indication: CROHN^S DISEASE
     Dates: start: 20110410, end: 20110507
  66. MEDROL [Concomitant]
     Dates: start: 20110508, end: 20110513
  67. MEDROL [Concomitant]
     Dates: start: 20110514, end: 20110520
  68. MEDROL [Concomitant]
     Dates: start: 20110521, end: 20110527
  69. CLEXANE [Concomitant]
     Indication: PROPHYLAXIS
     Dates: start: 20110513, end: 20110603
  70. AZATHIOPRINE [Concomitant]
     Indication: CROHN^S DISEASE

REACTIONS (2)
  - Adenocarcinoma of colon [Fatal]
  - Small intestine carcinoma [Fatal]
